FAERS Safety Report 6167678-6 (Version None)
Quarter: 2009Q2

REPORT INFORMATION
  Report Type: 
  Country: None (occurrence: None)
  Receive Date: 20090424
  Receipt Date: 20090416
  Transmission Date: 20091009
  Serious: Yes (Hospitalization)
  Sender: FDA-Public Use
  Company Number: FR-ABBOTT-09P-056-0568672-00

PATIENT
  Age: 48 Year
  Sex: Male

DRUGS (3)
  1. KALETRA [Suspect]
     Indication: HIV INFECTION
     Dates: start: 20060101
  2. TRUVADA [Suspect]
     Indication: HIV INFECTION
     Dates: start: 20060101
  3. VIRACEPT [Concomitant]
     Indication: HIV INFECTION

REACTIONS (3)
  - BUNDLE BRANCH BLOCK LEFT [None]
  - LEFT VENTRICULAR FAILURE [None]
  - PHLEBITIS [None]
